FAERS Safety Report 8685732 (Version 2)
Quarter: 2012Q4

REPORT INFORMATION
  Report Type: 
  Country: DE (occurrence: DE)
  Receive Date: 20120726
  Receipt Date: 20120928
  Transmission Date: 20130627
  Serious: Yes (Hospitalization, Other)
  Sender: FDA-Public Use
  Company Number: DE-ROCHE-1092480

PATIENT
  Sex: Male
  Weight: 88 kg

DRUGS (13)
  1. ROACTEMRA [Suspect]
     Indication: RHEUMATOID ARTHRITIS
     Route: 042
     Dates: start: 20120424
  2. PREDNISOLONE [Concomitant]
     Route: 048
  3. BELOC-ZOK MITE [Concomitant]
     Route: 065
  4. RAMIPRIL [Concomitant]
     Route: 065
  5. CYMBALTA [Concomitant]
     Route: 065
  6. TAMSULOSIN [Concomitant]
     Route: 065
  7. TILIDINE [Concomitant]
     Route: 065
  8. TORASEMID [Concomitant]
     Route: 065
  9. ADENURIC [Concomitant]
     Route: 065
  10. LAMOTRIGIN [Concomitant]
     Route: 065
  11. BERLTHYROX [Concomitant]
     Route: 065
  12. PANTOPRAZOL [Concomitant]
     Route: 065
  13. INSULIN HUMALOG [Concomitant]

REACTIONS (2)
  - Chlamydial infection [Recovered/Resolved]
  - Pleural effusion [Recovering/Resolving]
